FAERS Safety Report 13628161 (Version 1)
Quarter: 2017Q2

REPORT INFORMATION
  Report Type: Spontaneous
  Country: US (occurrence: US)
  Receive Date: 20170608
  Receipt Date: 20170608
  Transmission Date: 20170830
  Serious: No
  Sender: FDA-Public Use
  Company Number: US-PERRIGO-17US002745

PATIENT
  Age: 67 Year
  Sex: Male
  Weight: 68.27 kg

DRUGS (3)
  1. MINOXIDIL. [Suspect]
     Active Substance: MINOXIDIL
     Indication: ALOPECIA
     Dosage: SMALL AMOUNT, BID
     Route: 061
     Dates: start: 20170219, end: 20170319
  2. MINOXIDIL. [Suspect]
     Active Substance: MINOXIDIL
     Dosage: SMALL AMOUNT, BID
     Route: 061
     Dates: start: 20170320
  3. SYNTHROID [Concomitant]
     Active Substance: LEVOTHYROXINE SODIUM
     Indication: THYROIDECTOMY
     Dosage: UNK
     Route: 048

REACTIONS (1)
  - Off label use [Unknown]

NARRATIVE: CASE EVENT DATE: 20170219
